FAERS Safety Report 9450116 (Version 1)
Quarter: 2013Q3

REPORT INFORMATION
  Report Type: Spontaneous
  Country: DE (occurrence: DE)
  Receive Date: 20130809
  Receipt Date: 20130809
  Transmission Date: 20140515
  Serious: Yes (Hospitalization, Other)
  Sender: FDA-Public Use
  Company Number: DE-PFIZER INC-2013227187

PATIENT
  Age: 1 Day
  Sex: Male

DRUGS (9)
  1. LYRICA [Suspect]
     Indication: EPILEPSY
     Dosage: 75 MG, 2X/DAY
     Route: 064
     Dates: start: 20081005, end: 20081007
  2. TRILEPTAL [Suspect]
     Indication: EPILEPSY
     Dosage: 300MG-0-600MG.-0
     Route: 064
     Dates: start: 20080301, end: 20081007
  3. RIVOTRIL [Suspect]
     Indication: EPILEPSY
     Dosage: UNK
     Route: 064
     Dates: start: 20081007, end: 20081007
  4. DIAZEPAM [Suspect]
     Indication: EPILEPSY
     Dosage: 5 MG, UNK
     Route: 064
     Dates: start: 20081007, end: 20081007
  5. BETAMETHASONE [Concomitant]
     Indication: MATERNAL THERAPY TO ENHANCE FOETAL LUNG MATURITY
     Dosage: UNK
     Route: 064
  6. KALINOR-BRAUSETABLETTEN [Concomitant]
     Indication: HYPOKALAEMIA
     Dosage: 2.057 G, 1X/DAY
     Route: 064
     Dates: start: 20081005, end: 20081005
  7. KALINOR-BRAUSETABLETTEN [Concomitant]
     Dosage: 2 G, 1X/DAY
     Route: 064
     Dates: start: 20081006, end: 20081006
  8. KALINOR-BRAUSETABLETTEN [Concomitant]
     Dosage: 2.17 G, 1X/DAY
     Route: 064
     Dates: start: 20081007, end: 20081007
  9. SODIUM CHLORIDE [Concomitant]
     Indication: ELECTROLYTE IMBALANCE
     Dosage: UNK
     Route: 064
     Dates: start: 20081005, end: 20081007

REACTIONS (5)
  - Maternal exposure timing unspecified [Recovered/Resolved]
  - Bradycardia neonatal [Recovered/Resolved]
  - Apnoea neonatal [Recovered/Resolved]
  - Neonatal respiratory distress syndrome [Recovered/Resolved]
  - Feeding disorder neonatal [Recovered/Resolved]
